FAERS Safety Report 8079600-6 (Version None)
Quarter: 2012Q1

REPORT INFORMATION
  Report Type: 
  Country: None (occurrence: None)
  Receive Date: 20120128
  Receipt Date: 20110831
  Transmission Date: 20120608
  Serious: No
  Sender: FDA-Public Use
  Company Number: US-ABBOTT-11P-163-0850415-00

PATIENT
  Sex: Female
  Weight: 72.64 kg

DRUGS (4)
  1. FOLIC ACID [Concomitant]
     Indication: ANAEMIA
  2. HUMIRA [Suspect]
     Indication: RHEUMATOID ARTHRITIS
     Route: 058
     Dates: start: 20110826
  3. METHOTREXATE [Concomitant]
     Indication: RHEUMATOID ARTHRITIS
  4. IRON [Concomitant]
     Indication: ANAEMIA

REACTIONS (1)
  - SWELLING [None]
